FAERS Safety Report 18363503 (Version 1)
Quarter: 2020Q4

REPORT INFORMATION
  Report Type: Other
  Country: FR (occurrence: FR)
  Receive Date: 20201009
  Receipt Date: 20201009
  Transmission Date: 20210114
  Serious: Yes (Death, Hospitalization)
  Sender: FDA-Public Use
  Company Number: FR-ROCHE-2654854

PATIENT
  Age: 81 Year
  Sex: Female

DRUGS (2)
  1. BEVACIZUMAB. [Suspect]
     Active Substance: BEVACIZUMAB
     Indication: COLORECTAL CANCER METASTATIC
     Dosage: 51 CYCLES
     Route: 065
     Dates: start: 20170112
  2. CAPECITABINE. [Suspect]
     Active Substance: CAPECITABINE
     Indication: COLORECTAL CANCER METASTATIC
     Dosage: 43 CYCLES
     Route: 065
     Dates: start: 20170601

REACTIONS (2)
  - Hypoxia [Fatal]
  - Pneumonia pneumococcal [Fatal]

NARRATIVE: CASE EVENT DATE: 20191229
